FAERS Safety Report 13301370 (Version 3)
Quarter: 2017Q2

REPORT INFORMATION
  Report Type: Spontaneous
  Country: US (occurrence: US)
  Receive Date: 20170307
  Receipt Date: 20170606
  Transmission Date: 20170830
  Serious: No
  Sender: FDA-Public Use
  Company Number: US-PFIZER INC-2017095206

PATIENT
  Age: 88 Year
  Sex: Female

DRUGS (2)
  1. PREMARIN [Suspect]
     Active Substance: ESTROGENS, CONJUGATED
     Dosage: 0.3 MG, UNK (2-3 TIMES A WEEK)
  2. PREMARIN [Suspect]
     Active Substance: ESTROGENS, CONJUGATED
     Indication: MENOPAUSE
     Dosage: UNK (1 EVERY FOUR DAYS)

REACTIONS (4)
  - Drug dose omission [Not Recovered/Not Resolved]
  - Product use issue [Unknown]
  - Hypoacusis [Unknown]
  - Palpitations [Unknown]
